FAERS Safety Report 15044607 (Version 1)
Quarter: 2018Q2

REPORT INFORMATION
  Report Type: Report from Study
  Country: ES (occurrence: ES)
  Receive Date: 20180621
  Receipt Date: 20180621
  Transmission Date: 20180711
  Serious: Yes (Hospitalization, Other)
  Sender: FDA-Public Use
  Company Number: ES-SA-2018SA147613

PATIENT
  Sex: Female

DRUGS (5)
  1. INSULIN GLARGINE [Suspect]
     Active Substance: INSULIN GLARGINE
     Indication: TYPE 2 DIABETES MELLITUS
     Dosage: 36 IU, QD
     Route: 058
     Dates: start: 2016
  2. TRULICITY [Concomitant]
     Active Substance: DULAGLUTIDE
     Indication: TYPE 2 DIABETES MELLITUS
     Dosage: UNK UNK, QW
     Route: 058
  3. INSULIN GLARGINE [Suspect]
     Active Substance: INSULIN GLARGINE
     Dosage: 40 IU, QD
     Route: 058
  4. VOKANAMET [CANAGLIFLOZIN HEMIHYDRATE;METFORMIN HYDROCHLORIDE] [Concomitant]
     Indication: TYPE 2 DIABETES MELLITUS
     Dosage: 1 DF, BID
     Route: 048
  5. ADOFEN [Suspect]
     Active Substance: FLUOXETINE HYDROCHLORIDE
     Indication: TYPE 2 DIABETES MELLITUS
     Dosage: UNK, UNK
     Route: 048
     Dates: end: 201801

REACTIONS (5)
  - Intentional product misuse [Unknown]
  - Hypoaesthesia [Recovered/Resolved]
  - Weight decreased [Recovered/Resolved]
  - Glaucoma [Recovered/Resolved]
  - Benign breast neoplasm [Recovered/Resolved]

NARRATIVE: CASE EVENT DATE: 201701
